FAERS Safety Report 24868331 (Version 1)
Quarter: 2025Q1

REPORT INFORMATION
  Report Type: Spontaneous
  Country: US (occurrence: None)
  Receive Date: 20250120
  Receipt Date: 20250120
  Transmission Date: 20250408
  Serious: Yes (Life-Threatening)
  Sender: FDA-CTU
  Company Number: None

PATIENT
  Age: 68 Year
  Sex: Male
  Weight: 112.5 kg

DRUGS (2)
  1. AJOVY [Suspect]
     Active Substance: FREMANEZUMAB-VFRM
     Indication: Migraine
     Route: 050
     Dates: start: 20240923, end: 20241223
  2. VITAMINS [Concomitant]
     Active Substance: VITAMINS

REACTIONS (21)
  - Bedridden [None]
  - Ataxia [None]
  - Bruxism [None]
  - Cognitive disorder [None]
  - Dysgraphia [None]
  - Disorganised speech [None]
  - Constipation [None]
  - Depression [None]
  - Dizziness [None]
  - Fatigue [None]
  - Malaise [None]
  - Hypersomnia [None]
  - Insomnia [None]
  - Myalgia [None]
  - Arthralgia [None]
  - Abnormal dreams [None]
  - Self-destructive behaviour [None]
  - Hallucination [None]
  - Dyspnoea [None]
  - Rash [None]
  - Lymphadenopathy [None]

NARRATIVE: CASE EVENT DATE: 20240923
